FAERS Safety Report 10037525 (Version 3)
Quarter: 2014Q2

REPORT INFORMATION
  Report Type: Report from Study
  Country: US (occurrence: US)
  Receive Date: 20140326
  Receipt Date: 20140409
  Transmission Date: 20141212
  Serious: Yes (Other)
  Sender: FDA-Public Use
  Company Number: US-BAYER-2014-014132

PATIENT
  Age: 60 Year
  Sex: Female

DRUGS (5)
  1. RIOCIGUAT (GUANYLATE CYCLASE STIMULATOR) [Suspect]
     Indication: PULMONARY ARTERIAL HYPERTENSION
     Dosage: 0.5 MG, TID
     Route: 048
     Dates: start: 20131231
  2. RIOCIGUAT (GUANYLATE CYCLASE STIMULATOR) [Suspect]
     Indication: PULMONARY ARTERIAL HYPERTENSION
     Dosage: 0.5 MG, TID
     Route: 048
     Dates: start: 20140109
  3. RIOCIGUAT (GUANYLATE CYCLASE STIMULATOR) [Suspect]
     Indication: PULMONARY ARTERIAL HYPERTENSION
     Dosage: 1 MG, TID
     Route: 048
     Dates: start: 20140113
  4. RIOCIGUAT (GUANYLATE CYCLASE STIMULATOR) [Suspect]
     Indication: PULMONARY ARTERIAL HYPERTENSION
     Dosage: 1 MG, UNK
     Route: 048
     Dates: start: 20140218
  5. RIOCIGUAT (GUANYLATE CYCLASE STIMULATOR) [Suspect]
     Indication: PULMONARY ARTERIAL HYPERTENSION
     Dosage: 0.5 MG, TID
     Route: 048
     Dates: start: 201403

REACTIONS (23)
  - International normalised ratio increased [None]
  - Haematochezia [None]
  - Faeces discoloured [Not Recovered/Not Resolved]
  - Abdominal pain [None]
  - Flatulence [None]
  - Headache [None]
  - Headache [None]
  - Hot flush [None]
  - Influenza like illness [None]
  - Diarrhoea [None]
  - Pain [None]
  - Fatigue [Not Recovered/Not Resolved]
  - Dizziness [None]
  - Hyperhidrosis [None]
  - Chills [None]
  - Dyspnoea [None]
  - Increased appetite [None]
  - Nasal congestion [None]
  - Vision blurred [None]
  - Eye discharge [None]
  - Restless legs syndrome [None]
  - Poor quality sleep [None]
  - Muscle spasms [None]
